FAERS Safety Report 8065647-2 (Version None)
Quarter: 2012Q1

REPORT INFORMATION
  Report Type: 
  Country: None (occurrence: None)
  Receive Date: 20120124
  Receipt Date: 20120116
  Transmission Date: 20120608
  Serious: Yes (Death)
  Sender: FDA-Public Use
  Company Number: US-ROXANE LABORATORIES, INC.-2012-EU-00402GD

PATIENT
  Age: 38 Year
  Sex: Male

DRUGS (4)
  1. TRAMADOL HCL [Suspect]
     Dosage: ROUTE: INGESTION PLUS INHALATION
  2. ACETAMINOPHEN AND HYDROCODONE BITARTRATE [Suspect]
     Dosage: ROUTE: INGESTION PLUS INHALATION
  3. DIAZEPAM [Suspect]
     Dosage: ROUTE: INGESTION PLUS INHALATION
  4. MORPHINE [Suspect]
     Dosage: ROUTE: INGESTION PLUS INHALATION

REACTIONS (1)
  - COMPLETED SUICIDE [None]
